FAERS Safety Report 12355373 (Version 2)
Quarter: 2016Q2

REPORT INFORMATION
  Report Type: Spontaneous
  Country: JP (occurrence: JP)
  Receive Date: 20160511
  Receipt Date: 20160524
  Transmission Date: 20160815
  Serious: Yes (Death)
  Sender: FDA-Public Use
  Company Number: JP-BIOCRYST PHARMACEUTICALS, INC.-2016BCR00183

PATIENT
  Age: 8 Decade
  Sex: Male

DRUGS (1)
  1. RAPIACTA [Suspect]
     Active Substance: PERAMIVIR
     Indication: INFLUENZA
     Dosage: 300 MG, UNK
     Route: 042
     Dates: start: 20160419, end: 20160420

REACTIONS (1)
  - Death [Fatal]

NARRATIVE: CASE EVENT DATE: 20160421
